FAERS Safety Report 8162305-0 (Version None)
Quarter: 2012Q1

REPORT INFORMATION
  Report Type: 
  Country: None (occurrence: None)
  Receive Date: 20120103
  Receipt Date: 20111001
  Transmission Date: 20120608
  Serious: No
  Sender: FDA-Public Use
  Company Number: AE-2011-001961

PATIENT
  Age: 57 Year
  Sex: Female
  Weight: 65.7716 kg

DRUGS (4)
  1. RIBAVIRIN [Concomitant]
  2. ATIVAN [Concomitant]
  3. INCIVEK [Suspect]
     Dosage: (3 IN 1 D)
     Dates: start: 20110904
  4. PEGASYS [Concomitant]

REACTIONS (2)
  - OROPHARYNGEAL PAIN [None]
  - INSOMNIA [None]
